FAERS Safety Report 23015130 (Version 2)
Quarter: 2023Q4

REPORT INFORMATION
  Report Type: Spontaneous
  Country: US (occurrence: US)
  Receive Date: 20231002
  Receipt Date: 20231017
  Transmission Date: 20240109
  Serious: Yes (Life-Threatening, Other)
  Sender: FDA-Public Use
  Company Number: US-PFIZER INC-PV202300162260

PATIENT
  Age: 79 Year
  Sex: Male

DRUGS (1)
  1. DOXYCYCLINE HYCLATE [Suspect]
     Active Substance: DOXYCYCLINE HYCLATE
     Indication: Mycobacterial infection
     Dosage: 100 MG, 2X/DAY

REACTIONS (3)
  - Photosensitivity reaction [Unknown]
  - Off label use [Unknown]
  - Drug ineffective for unapproved indication [Unknown]
